FAERS Safety Report 20334717 (Version 1)
Quarter: 2022Q1

REPORT INFORMATION
  Report Type: Spontaneous
  Country: US (occurrence: US)
  Receive Date: 20220114
  Receipt Date: 20220114
  Transmission Date: 20220424
  Serious: Yes (Other)
  Sender: FDA-Public Use
  Company Number: US-APOTEX-2022AP002026

PATIENT
  Age: 59 Year
  Sex: Male

DRUGS (4)
  1. GEMCITABINE [Suspect]
     Active Substance: GEMCITABINE
     Indication: Gallbladder adenocarcinoma
     Dosage: UNK
     Route: 065
  2. GEMCITABINE [Suspect]
     Active Substance: GEMCITABINE
     Indication: Chemotherapy multiple agents systemic
  3. CISPLATIN [Suspect]
     Active Substance: CISPLATIN
     Indication: Gallbladder adenocarcinoma
     Dosage: UNK
     Route: 065
  4. CISPLATIN [Suspect]
     Active Substance: CISPLATIN
     Indication: Chemotherapy multiple agents systemic

REACTIONS (4)
  - Neuropathy peripheral [Unknown]
  - Bacteraemia [Unknown]
  - Cholangitis [Unknown]
  - Liver abscess [Unknown]
